FAERS Safety Report 14220425 (Version 1)
Quarter: 2017Q4

REPORT INFORMATION
  Report Type: Spontaneous
  Country: HR (occurrence: HR)
  Receive Date: 20171124
  Receipt Date: 20171124
  Transmission Date: 20180321
  Serious: Yes (Death, Hospitalization, Other)
  Sender: FDA-Public Use
  Company Number: HR-GLAXOSMITHKLINE-HR2017GSK180036

PATIENT
  Age: 53 Year
  Sex: Male

DRUGS (2)
  1. ACITRETIN. [Suspect]
     Active Substance: ACITRETIN
     Indication: PRODUCT USED FOR UNKNOWN INDICATION
  2. FLUCONAZOLE. [Suspect]
     Active Substance: FLUCONAZOLE
     Indication: CANDIDA INFECTION

REACTIONS (8)
  - Diabetes mellitus [Unknown]
  - Candida infection [Unknown]
  - Autoimmune hepatitis [Unknown]
  - Febrile neutropenia [Unknown]
  - Hepatotoxicity [Unknown]
  - Sepsis [Fatal]
  - Lymphoma [Unknown]
  - Mycosis fungoides [Unknown]
